FAERS Safety Report 9045732 (Version 1)
Quarter: 2013Q1

REPORT INFORMATION
  Report Type: Report from Study
  Country: US (occurrence: US)
  Receive Date: 20130131
  Receipt Date: 20130131
  Transmission Date: 20140127
  Serious: No
  Sender: FDA-Public Use
  Company Number: US-ABBOTT-12P-163-0992601-00

PATIENT
  Age: 56 Year
  Sex: Female

DRUGS (5)
  1. HUMIRA [Suspect]
     Indication: ANKYLOSING SPONDYLITIS
     Dates: start: 20120925
  2. LODINE [Concomitant]
     Indication: PRODUCT USED FOR UNKNOWN INDICATION
     Dosage: WHEN I WORK, OTHERWISE I DON^T TAKE ANY
  3. ZOCOR [Concomitant]
     Indication: BLOOD CHOLESTEROL
  4. ZYRTEC [Concomitant]
     Indication: PRODUCT USED FOR UNKNOWN INDICATION
  5. ONE A DAY WOMEN^S VITAMIN [Concomitant]
     Indication: PRODUCT USED FOR UNKNOWN INDICATION

REACTIONS (22)
  - Injection site pain [Not Recovered/Not Resolved]
  - Injection site pain [Recovered/Resolved]
  - Pain [Unknown]
  - Pain in extremity [Recovered/Resolved]
  - Oropharyngeal discomfort [Unknown]
  - Hypoaesthesia [Unknown]
  - Facial pain [Unknown]
  - Fatigue [Not Recovered/Not Resolved]
  - Back pain [Recovered/Resolved]
  - Headache [Unknown]
  - Pyrexia [Recovered/Resolved]
  - Rhinorrhoea [Recovered/Resolved]
  - Sinus disorder [Recovered/Resolved]
  - Ear pain [Unknown]
  - Visual impairment [Unknown]
  - Malaise [Unknown]
  - Visual impairment [Unknown]
  - Visual impairment [Unknown]
  - Visual impairment [Unknown]
  - Arthralgia [Unknown]
  - Neck pain [Unknown]
  - Hypoaesthesia [Unknown]
